FAERS Safety Report 21789536 (Version 1)
Quarter: 2022Q4

REPORT INFORMATION
  Report Type: Spontaneous
  Country: US (occurrence: None)
  Receive Date: 20221227
  Receipt Date: 20221227
  Transmission Date: 20230113
  Serious: No
  Sender: FDA-Public Use
  Company Number: None

PATIENT

DRUGS (3)
  1. CARDENE [Suspect]
     Active Substance: NICARDIPINE HYDROCHLORIDE
  2. NEXTERONE [Suspect]
     Active Substance: AMIODARONE HYDROCHLORIDE
  3. MYXREDLIN [Suspect]
     Active Substance: INSULIN HUMAN

REACTIONS (2)
  - Wrong product stored [None]
  - Product packaging confusion [None]
